FAERS Safety Report 6040355-8 (Version None)
Quarter: 2009Q1

REPORT INFORMATION
  Report Type: 
  Country: None (occurrence: None)
  Receive Date: 20090116
  Receipt Date: 20080417
  Transmission Date: 20090719
  Serious: No
  Sender: FDA-Public Use
  Company Number: US-BRISTOL-MYERS SQUIBB COMPANY-14090088

PATIENT
  Age: 38 Year
  Sex: Female

DRUGS (4)
  1. ABILIFY [Suspect]
     Indication: DEPRESSION
     Route: 048
     Dates: start: 20080103, end: 20080207
  2. CONCERTA [Suspect]
     Indication: DEPRESSION
     Dates: start: 20070228
  3. WELLBUTRIN [Suspect]
     Indication: DEPRESSION
     Dates: start: 20070614
  4. EFFEXOR [Suspect]
     Dates: start: 20071120

REACTIONS (3)
  - EYE SWELLING [None]
  - SCRATCH [None]
  - VISION BLURRED [None]
